FAERS Safety Report 8817822 (Version 3)
Quarter: 2013Q2

REPORT INFORMATION
  Report Type: Report from Study
  Country: DE (occurrence: DE)
  Receive Date: 20121004
  Receipt Date: 20130617
  Transmission Date: 20140414
  Serious: Yes (Life-Threatening, Hospitalization, Other)
  Sender: FDA-Public Use
  Company Number: DE-ROCHE-1026098

PATIENT
  Age: 60 Year
  Sex: Female
  Weight: 88 kg

DRUGS (17)
  1. TRASTUZUMAB EMTANSINE [Suspect]
     Indication: BREAST CANCER METASTATIC
     Dosage: DATE OF LAST DOSE OF T-DM1 ON 14 DEC 2011, LAST DOSE TAKEN WAS 280.5 MG
     Route: 042
     Dates: start: 20100910
  2. L-THYROXINE [Concomitant]
     Indication: HYPOTHYROIDISM
     Route: 065
     Dates: end: 201112
  3. L-THYROXINE [Concomitant]
     Route: 065
     Dates: start: 20120111
  4. RAMIPRIL [Concomitant]
     Indication: HYPERTENSION
     Route: 065
     Dates: end: 201112
  5. RAMIPRIL [Concomitant]
     Route: 065
     Dates: start: 20120102, end: 20120102
  6. CYMBALTA [Concomitant]
     Indication: DEPRESSION
     Route: 065
     Dates: end: 201112
  7. SAROTEN [Concomitant]
     Indication: DEPRESSION
     Dosage: DRUG: SAROTEN 75
     Route: 065
     Dates: end: 201112
  8. DUROGESIC [Concomitant]
     Indication: PAIN
     Route: 065
     Dates: end: 201112
  9. DUROGESIC [Concomitant]
     Route: 065
     Dates: start: 20120111, end: 201202
  10. FRAGMIN [Concomitant]
     Indication: PROPHYLAXIS
     Route: 065
     Dates: start: 20120103, end: 20120117
  11. FRAGMIN [Concomitant]
     Route: 065
     Dates: start: 20120120, end: 20120127
  12. VOMEX A [Concomitant]
     Indication: NAUSEA
     Route: 065
     Dates: start: 20110901
  13. NOVALGIN [Concomitant]
     Indication: PAIN
     Route: 065
     Dates: start: 20101022, end: 201112
  14. SEVREDOL [Concomitant]
     Indication: PAIN
     Route: 065
     Dates: start: 20101023, end: 201112
  15. RANITIDIN [Concomitant]
     Indication: PREMEDICATION
     Route: 065
     Dates: start: 20100910, end: 20111214
  16. TAVEGIL [Concomitant]
     Indication: PREMEDICATION
     Route: 065
     Dates: start: 20100910, end: 20111214
  17. PERTUZUMAB [Suspect]
     Indication: BREAST CANCER METASTATIC
     Dosage: DATE OF LAST DOSE OF PERTUZUMAB ON 14 DEC 2011
     Route: 042
     Dates: start: 20100910

REACTIONS (3)
  - Septic shock [Recovered/Resolved]
  - Blood bilirubin increased [Recovered/Resolved]
  - Guillain-Barre syndrome [Not Recovered/Not Resolved]
